FAERS Safety Report 8331465-0 (Version None)
Quarter: 2012Q2

REPORT INFORMATION
  Report Type: 
  Country: None (occurrence: None)
  Receive Date: 20120502
  Receipt Date: 20120426
  Transmission Date: 20120825
  Serious: Yes (Other)
  Sender: FDA-Public Use
  Company Number: US-FRI-1000029664

PATIENT
  Age: 46 Year
  Sex: Male

DRUGS (4)
  1. TRAZODONE HCL [Suspect]
     Indication: INSOMNIA
     Dosage: 200 MG QHS
  2. KLONOPIN [Concomitant]
  3. NEURONTIN [Concomitant]
  4. LEXAPRO [Suspect]
     Indication: ANXIETY
     Dosage: 10 MG
     Dates: start: 20060101, end: 20120401

REACTIONS (5)
  - LEGAL PROBLEM [None]
  - MYOCARDIAL INFARCTION [None]
  - MALAISE [None]
  - BLOOD PRESSURE DECREASED [None]
  - HEART RATE DECREASED [None]
